FAERS Safety Report 5524357-3 (Version None)
Quarter: 2007Q4

REPORT INFORMATION
  Report Type: 
  Country: None (occurrence: None)
  Receive Date: 20071121
  Receipt Date: 20071112
  Transmission Date: 20080405
  Serious: Yes (Other)
  Sender: FDA-Public Use
  Company Number: CA-PFIZER INC-2007095930

PATIENT
  Age: 83 Year
  Sex: Male

DRUGS (4)
  1. XALATAN [Suspect]
     Route: 047
  2. COMBIGAN [Concomitant]
  3. TRUSOPT [Concomitant]
  4. PANTOPRAZOLE SODIUM [Concomitant]

REACTIONS (1)
  - CHROMATOPSIA [None]
